FAERS Safety Report 5564866-4 (Version None)
Quarter: 2007Q4

REPORT INFORMATION
  Report Type: 
  Country: None (occurrence: None)
  Receive Date: 20071212
  Receipt Date: 20071204
  Transmission Date: 20080405
  Serious: Yes (Death, Hospitalization, Other)
  Sender: FDA-Public Use
  Company Number: 083-20785-07120280

PATIENT
  Age: 68 Year
  Sex: Male

DRUGS (4)
  1. THALOMID [Suspect]
     Indication: LEUKAEMIA PLASMACYTIC
     Dosage: 100 MG, QD; ORAL
     Route: 048
  2. MELPHALAN (MELPHALAN) [Concomitant]
  3. BORTEZOMIB (BORTEZOMIB) [Concomitant]
  4. DEXAMETHASONE TAB [Concomitant]

REACTIONS (6)
  - CARDIOTOXICITY [None]
  - DISEASE PROGRESSION [None]
  - SINUS BRADYCARDIA [None]
  - SYNCOPE [None]
  - VENTRICULAR EXTRASYSTOLES [None]
  - VENTRICULAR TACHYCARDIA [None]
